FAERS Safety Report 21376207 (Version 1)
Quarter: 2022Q3

REPORT INFORMATION
  Report Type: Spontaneous
  Country: US (occurrence: None)
  Receive Date: 20220923
  Receipt Date: 20220923
  Transmission Date: 20221027
  Serious: Yes (Other)
  Sender: FDA-Public Use
  Company Number: None

PATIENT
  Age: 67 Year
  Sex: Male
  Weight: 111.6 kg

DRUGS (6)
  1. KETAMINE [Suspect]
     Active Substance: KETAMINE
     Indication: Complex regional pain syndrome
     Dates: end: 20220919
  2. LOSARTAN [Concomitant]
     Active Substance: LOSARTAN
  3. FINASTERIDE [Concomitant]
     Active Substance: FINASTERIDE
  4. TAMSULOSIN [Concomitant]
     Active Substance: TAMSULOSIN
  5. TEMAZEPAM [Concomitant]
     Active Substance: TEMAZEPAM
  6. ZYRTEC [Concomitant]
     Active Substance: CETIRIZINE HYDROCHLORIDE

REACTIONS (10)
  - Agitation [None]
  - Anxiety [None]
  - Infusion related reaction [None]
  - Anxiety [None]
  - Transient aphasia [None]
  - Asthenia [None]
  - Dysstasia [None]
  - Gait disturbance [None]
  - Balance disorder [None]
  - Dysarthria [None]

NARRATIVE: CASE EVENT DATE: 20220919
